FAERS Safety Report 8309878-2 (Version None)
Quarter: 2012Q2

REPORT INFORMATION
  Report Type: 
  Country: None (occurrence: None)
  Receive Date: 20120423
  Receipt Date: 20120411
  Transmission Date: 20120825
  Serious: Yes (Death)
  Sender: FDA-Public Use
  Company Number: UTC-017650

PATIENT
  Age: 57 Year
  Sex: Female
  Weight: 81.81 kg

DRUGS (4)
  1. ADCIRCA [Concomitant]
  2. COUMADIN [Concomitant]
  3. TRACLEER [Concomitant]
  4. REMODULIN [Suspect]
     Indication: COR PULMONALE CHRONIC
     Dosage: (0.08 UG/KG), SUBCUTANEOUS
     Route: 058
     Dates: start: 20060918

REACTIONS (1)
  - DEATH [None]
